FAERS Safety Report 9532315 (Version 2)
Quarter: 2013Q3

REPORT INFORMATION
  Report Type: Report from Study
  Country: CN (occurrence: CN)
  Receive Date: 20130918
  Receipt Date: 20130918
  Transmission Date: 20140515
  Serious: Yes (Other)
  Sender: FDA-Public Use
  Company Number: CN-ROCHE-1214370

PATIENT
  Sex: 0

DRUGS (2)
  1. CAPECITABINE [Suspect]
     Indication: COLON CANCER
     Dosage: BODY SURFACE AREA; DAYS 1-14 OF A 3-WEEK CYCLE FOR 8 CYCLES
     Route: 048
  2. OXALIPLATIN [Suspect]
     Indication: COLON CANCER
     Dosage: BODY SURFACEAREA (BSA) FOR 2 HOURS ON DAY 1
     Route: 042

REACTIONS (4)
  - Neurotoxicity [Unknown]
  - Neutropenia [Unknown]
  - Palmar-plantar erythrodysaesthesia syndrome [Unknown]
  - Thrombocytopenia [Unknown]
